FAERS Safety Report 26154217 (Version 1)
Quarter: 2025Q4

REPORT INFORMATION
  Report Type: Spontaneous
  Country: US (occurrence: US)
  Receive Date: 20251215
  Receipt Date: 20251215
  Transmission Date: 20260117
  Serious: No
  Sender: VIIV
  Company Number: US-VIIV HEALTHCARE-US2025150845

PATIENT
  Sex: Female

DRUGS (5)
  1. CABENUVA [Suspect]
     Active Substance: CABOTEGRAVIR\RILPIVIRINE
     Indication: HIV viraemia
     Dosage: UNK
  2. CABENUVA [Suspect]
     Active Substance: CABOTEGRAVIR\RILPIVIRINE
  3. CABENUVA [Suspect]
     Active Substance: CABOTEGRAVIR\RILPIVIRINE
  4. LENACAPAVIR [Suspect]
     Active Substance: LENACAPAVIR
     Indication: HIV viraemia
     Dosage: UNK
  5. IBALIZUMAB [Suspect]
     Active Substance: IBALIZUMAB
     Indication: HIV viraemia
     Dosage: UNK

REACTIONS (1)
  - Product use issue [Unknown]
